FAERS Safety Report 9252315 (Version 1)
Quarter: 2013Q1

REPORT INFORMATION
  Report Type: Spontaneous
  Country: US (occurrence: None)
  Receive Date: 20130305
  Receipt Date: 20130305
  Transmission Date: 20140127
  Serious: Yes (Hospitalization)
  Sender: FDA-Public Use
  Company Number: 163-21880-12083110

PATIENT
  Age: 85 Year
  Sex: Female

DRUGS (4)
  1. REVLIMID [Suspect]
     Indication: PLASMA CELL MYELOMA
     Dosage: 15 MG, 21 IN 21 D
     Route: 048
     Dates: start: 20120814
  2. METOPROLOL SUCCINATE (METOPROLOL SUCCINATE) [Concomitant]
  3. PRAVASTATIN SODIUM (PRAVASTATIN SODIUM) [Concomitant]
  4. PANTOPRAZOLE SODIUM (PANTOPRAZOLE SODIUM) [Concomitant]

REACTIONS (2)
  - Haematochezia [None]
  - Dehydration [None]
